FAERS Safety Report 8191240-7 (Version None)
Quarter: 2012Q1

REPORT INFORMATION
  Report Type: 
  Country: None (occurrence: None)
  Receive Date: 20120307
  Receipt Date: 20120307
  Transmission Date: 20120608
  Serious: Yes (Death)
  Sender: FDA-Public Use
  Company Number: JP-BAYER-2012-022313

PATIENT
  Age: 55 Year
  Sex: Male

DRUGS (5)
  1. NEXAVAR [Suspect]
     Indication: ANGIOSARCOMA
     Dosage: DAILY DOSE 800 MG/D
     Route: 048
  2. PACLITAXEL [Suspect]
     Dosage: COMBINATION WITH SORAFENIB
  3. DOCETAXEL [Suspect]
     Indication: ANGIOSARCOMA
     Dosage: 15 COURSES 25-30 MG/M2
  4. PACLITAXEL [Suspect]
     Indication: ANGIOSARCOMA
     Dosage: 6 COURSES 60-80 MG/M2
  5. PROLEUKIN [Suspect]
     Indication: ANGIOSARCOMA
     Dosage: 134 LOCAL INJECTIONS AT 350 MU

REACTIONS (1)
  - SEPSIS [None]
